FAERS Safety Report 9700155 (Version 1)
Quarter: 2013Q4

REPORT INFORMATION
  Report Type: Spontaneous
  Country: AT (occurrence: AT)
  Receive Date: 20131121
  Receipt Date: 20131121
  Transmission Date: 20140711
  Serious: Yes (Other)
  Sender: FDA-Public Use
  Company Number: AT-JNJFOC-20131111198

PATIENT
  Age: 67 Year
  Sex: Female
  Weight: 60 kg

DRUGS (6)
  1. XARELTO [Suspect]
     Indication: CEREBROVASCULAR ACCIDENT PROPHYLAXIS
     Route: 048
     Dates: start: 20130813, end: 20130902
  2. XARELTO [Suspect]
     Indication: ATRIAL FIBRILLATION
     Route: 048
     Dates: start: 20130813, end: 20130902
  3. NEUROTOP [Concomitant]
     Dosage: 150  (UNITS UNSPECIFIED)
     Route: 065
  4. CANDESARTAN [Concomitant]
     Route: 065
  5. PANTOPRAZOLE [Concomitant]
     Dosage: 40 (UNITS UNSPECIFIED)
     Route: 065
  6. EUTHYROX [Concomitant]
     Dosage: 75 (UNITS UNSPECIFIED)
     Route: 065

REACTIONS (1)
  - Urticaria [Recovered/Resolved]
